FAERS Safety Report 5726887-8 (Version None)
Quarter: 2008Q2

REPORT INFORMATION
  Report Type: 
  Country: None (occurrence: None)
  Receive Date: 20080502
  Receipt Date: 20080424
  Transmission Date: 20081010
  Serious: Yes (Other)
  Sender: FDA-Public Use
  Company Number: US-ABBOTT-08P-163-0448950-00

PATIENT
  Sex: Male
  Weight: 108.96 kg

DRUGS (2)
  1. DEPAKOTE [Suspect]
     Indication: BIPOLAR DISORDER
     Dosage: PINK PILLS
     Route: 048
     Dates: start: 20050101
  2. DEPAKOTE [Suspect]
     Route: 048
     Dates: start: 19980101, end: 20050101

REACTIONS (3)
  - BLADDER CANCER [None]
  - CHROMATURIA [None]
  - HAEMATURIA [None]
